FAERS Safety Report 21305719 (Version 1)
Quarter: 2022Q3

REPORT INFORMATION
  Report Type: Spontaneous
  Country: US (occurrence: US)
  Receive Date: 20220908
  Receipt Date: 20220908
  Transmission Date: 20221027
  Serious: No
  Sender: FDA-Public Use
  Company Number: US-UROGEN PHARMA LTD.-2022-UGN-000079

PATIENT

DRUGS (13)
  1. JELMYTO [Suspect]
     Active Substance: MITOMYCIN
     Indication: Transitional cell cancer of the renal pelvis and ureter
     Dosage: UNK (INSTILLATION)
     Dates: start: 20211022, end: 20211022
  2. JELMYTO [Suspect]
     Active Substance: MITOMYCIN
     Dosage: UNK (INSTILLATION)
     Dates: start: 20211027, end: 20211027
  3. JELMYTO [Suspect]
     Active Substance: MITOMYCIN
     Dosage: UNK (INSTILLATION)
     Dates: start: 20211104, end: 20211104
  4. JELMYTO [Suspect]
     Active Substance: MITOMYCIN
     Dosage: UNK (INSTILLATION)
     Dates: start: 20211110, end: 20211110
  5. JELMYTO [Suspect]
     Active Substance: MITOMYCIN
     Dosage: UNK (INSTILLATION)
     Dates: start: 20211123, end: 20211123
  6. JELMYTO [Suspect]
     Active Substance: MITOMYCIN
     Dosage: UNK (INSTILLATION)
     Dates: start: 20211203, end: 20211203
  7. JELMYTO [Suspect]
     Active Substance: MITOMYCIN
     Dosage: UNK (INSTILLATION)
     Dates: start: 20220215, end: 20220215
  8. JELMYTO [Suspect]
     Active Substance: MITOMYCIN
     Dosage: UNK (INSTILLATION)
     Dates: start: 20220301, end: 20220301
  9. JELMYTO [Suspect]
     Active Substance: MITOMYCIN
     Dosage: UNK (INSTILLATION)
     Dates: start: 20220315, end: 20220315
  10. JELMYTO [Suspect]
     Active Substance: MITOMYCIN
     Dosage: UNK (INSTILLATION)
     Dates: start: 20220329, end: 20220329
  11. JELMYTO [Suspect]
     Active Substance: MITOMYCIN
     Dosage: UNK (INSTILLATION)
     Dates: start: 20220412, end: 20220412
  12. JELMYTO [Suspect]
     Active Substance: MITOMYCIN
     Dosage: UNK (INSTILLATION)
     Dates: start: 20220426, end: 20220426
  13. JELMYTO [Suspect]
     Active Substance: MITOMYCIN
     Dosage: UNK (INSTILLATION)
     Dates: start: 20220707, end: 20220707

REACTIONS (1)
  - Renal pain [Unknown]

NARRATIVE: CASE EVENT DATE: 20220701
